FAERS Safety Report 5426155-8 (Version None)
Quarter: 2007Q3

REPORT INFORMATION
  Report Type: 
  Country: None (occurrence: None)
  Receive Date: 20070827
  Receipt Date: 20070817
  Transmission Date: 20080115
  Serious: Yes (Hospitalization)
  Sender: FDA-Public Use
  Company Number: BE-AVENTIS-200717313GDDC

PATIENT
  Age: 47 Year
  Sex: Female
  Weight: 56 kg

DRUGS (10)
  1. TAXOTERE [Suspect]
     Route: 042
     Dates: start: 20070706, end: 20070706
  2. CISPLATIN [Suspect]
     Dates: start: 20070706, end: 20070706
  3. 5 FU [Suspect]
     Dates: start: 20070706, end: 20070709
  4. LASIX [Concomitant]
     Route: 048
  5. BEVIPLEX                           /00389901/ [Concomitant]
     Route: 048
  6. CLOZAN [Concomitant]
     Route: 048
  7. OMEPRAZOLE [Concomitant]
     Route: 048
  8. MS CONTIN [Concomitant]
     Indication: PAIN
     Route: 048
  9. VALPROATE SODIUM [Concomitant]
     Route: 048
  10. NICOTINELL                         /01033301/ [Concomitant]

REACTIONS (8)
  - BLOOD POTASSIUM DECREASED [None]
  - BLOOD SODIUM DECREASED [None]
  - COLITIS [None]
  - DELIRIUM [None]
  - HAEMOGLOBIN DECREASED [None]
  - HYPERURICAEMIA [None]
  - RENAL FAILURE ACUTE [None]
  - WHITE BLOOD CELL COUNT INCREASED [None]
